FAERS Safety Report 4661140-5 (Version None)
Quarter: 2005Q2

REPORT INFORMATION
  Report Type: 
  Country: None (occurrence: None)
  Receive Date: 20050511
  Receipt Date: 20050428
  Transmission Date: 20051028
  Serious: Yes (Hospitalization)
  Sender: FDA-Public Use
  Company Number: 2005068138

PATIENT
  Age: 44 Year
  Sex: Female

DRUGS (4)
  1. ATARAX [Suspect]
     Indication: ILL-DEFINED DISORDER
     Dosage: 100 MG, ORAL
     Route: 048
     Dates: start: 20040923, end: 20040923
  2. SOLU-MEDROL [Suspect]
     Indication: ILL-DEFINED DISORDER
     Dosage: 500, INTRAVENOUS
     Route: 042
     Dates: start: 20040923, end: 20040923
  3. MYCOPHENOLATE MOFETIL (MYCOPHENOLATE MOFETIL [Suspect]
     Indication: ILL-DEFINED DISORDER
     Dosage: 500 MG, ORAL
     Route: 048
     Dates: start: 20040923, end: 20040923
  4. BASILIXIMAB (BASILIXIMAB) [Suspect]
     Indication: ILL-DEFINED DISORDER
     Dosage: 20 MG, INTRAVENOUS
     Route: 042
     Dates: start: 20040923, end: 20040923

REACTIONS (3)
  - FORMICATION [None]
  - INFUSION SITE REACTION [None]
  - URTICARIA [None]
